FAERS Safety Report 5130395-5 (Version None)
Quarter: 2006Q4

REPORT INFORMATION
  Report Type: 
  Country: None (occurrence: None)
  Receive Date: 20061019
  Receipt Date: 20060731
  Transmission Date: 20070319
  Serious: Yes (Hospitalization)
  Sender: FDA-Public Use
  Company Number: FR-AVENTIS-200612692FR

PATIENT
  Age: 31 Day
  Sex: Female

DRUGS (5)
  1. RIFADIN [Suspect]
     Indication: ANTIBIOTIC PROPHYLAXIS
     Route: 048
     Dates: start: 20060722
  2. RIMIFON [Suspect]
     Indication: ANTIBIOTIC PROPHYLAXIS
     Route: 048
     Dates: start: 20060722
  3. CLAMOXYL                           /00249601/ [Concomitant]
     Dates: end: 20060701
  4. GENTAMICIN [Concomitant]
     Dates: end: 20060701
  5. ROCEPHIN                           /00672201/ [Concomitant]
     Dates: end: 20060701

REACTIONS (6)
  - ANAEMIA [None]
  - HAEMOGLOBIN DECREASED [None]
  - HAEMOLYTIC ANAEMIA [None]
  - MEAN CELL VOLUME INCREASED [None]
  - PLATELET COUNT INCREASED [None]
  - RETICULOCYTE COUNT INCREASED [None]
